FAERS Safety Report 14818851 (Version 1)
Quarter: 2018Q2

REPORT INFORMATION
  Report Type: Report from Study
  Country: JP (occurrence: JP)
  Receive Date: 20180427
  Receipt Date: 20180427
  Transmission Date: 20180711
  Serious: Yes (Other)
  Sender: FDA-Public Use
  Company Number: JP-ROCHE-1882293

PATIENT
  Age: 32 Year
  Sex: Male

DRUGS (19)
  1. COMELIAN [Concomitant]
     Active Substance: DILAZEP
     Indication: NEPHROTIC SYNDROME
     Route: 048
  2. DAIPHEN [Concomitant]
     Active Substance: SULFAMETHOXAZOLE\TRIMETHOPRIM
     Indication: NEPHROTIC SYNDROME
     Route: 048
     Dates: start: 20170117
  3. ATARAX-P [Concomitant]
     Active Substance: HYDROXYZINE HYDROCHLORIDE
     Route: 042
     Dates: start: 20161027, end: 20161027
  4. TAKEPRON [Concomitant]
     Active Substance: LANSOPRAZOLE
     Indication: GASTRIC ULCER
     Route: 048
  5. BREDININ [Suspect]
     Active Substance: MIZORIBINE
     Dosage: 5 DAYS A WEEK
     Route: 048
     Dates: start: 20150806
  6. SAXIZON [Concomitant]
     Active Substance: HYDROCORTISONE SODIUM SUCCINATE
     Route: 042
     Dates: start: 20161027, end: 20161027
  7. ALFAROL [Concomitant]
     Active Substance: ALFACALCIDOL
     Indication: OSTEOPOROSIS
     Route: 048
  8. RITUXIMAB. [Suspect]
     Active Substance: RITUXIMAB
     Dosage: INITIAL INFUSION RATE OF 100 MG/H AND THE MAXIMUM RATE OF 400 MG/H
     Route: 042
     Dates: start: 20161027, end: 20161027
  9. RITUXIMAB. [Suspect]
     Active Substance: RITUXIMAB
     Indication: NEPHROTIC SYNDROME
     Dosage: INITIAL INFUSION RATE OF 25 MG/H AND THE MAXIMUM RATE OF?200 MG/H
     Route: 042
     Dates: start: 20150213, end: 20150213
  10. MEDROL [Suspect]
     Active Substance: METHYLPREDNISOLONE
     Indication: NEPHROTIC SYNDROME
     Route: 048
  11. BREDININ [Suspect]
     Active Substance: MIZORIBINE
     Indication: NEPHROTIC SYNDROME
     Dosage: 5 DAYS A WEEK
     Route: 048
     Dates: end: 20150806
  12. CICLOSPORIN [Suspect]
     Active Substance: CYCLOSPORINE
     Indication: NEPHROTIC SYNDROME
     Route: 048
  13. LIPITOR [Concomitant]
     Active Substance: ATORVASTATIN CALCIUM
     Indication: HYPERLIPIDAEMIA
     Route: 048
  14. BAKTAR [Concomitant]
     Active Substance: SULFAMETHOXAZOLE\TRIMETHOPRIM
     Indication: INFECTION PROPHYLAXIS
     Dosage: PROPHYLAXIS FOR P. CARINII PNEUMONIA
     Route: 048
     Dates: start: 20150511
  15. SEISHOKU [Concomitant]
     Active Substance: SODIUM CHLORIDE
     Indication: PREMEDICATION
     Route: 042
     Dates: start: 20161027, end: 20161027
  16. FOSAMAC [Concomitant]
     Active Substance: ALENDRONATE SODIUM
     Indication: OSTEOPOROSIS
     Route: 048
  17. CICLOSPORIN [Suspect]
     Active Substance: CYCLOSPORINE
     Route: 048
  18. ATARAX-P [Concomitant]
     Active Substance: HYDROXYZINE HYDROCHLORIDE
     Indication: PREMEDICATION
     Route: 042
     Dates: start: 20150213, end: 20150213
  19. SAXIZON [Concomitant]
     Active Substance: HYDROCORTISONE SODIUM SUCCINATE
     Indication: PREMEDICATION
     Route: 042
     Dates: start: 20150213, end: 20150213

REACTIONS (4)
  - Nephrotic syndrome [Recovered/Resolved]
  - Hypertension [Recovering/Resolving]
  - Furuncle [Recovering/Resolving]
  - Acute abdomen [Recovered/Resolved]

NARRATIVE: CASE EVENT DATE: 201506
